FAERS Safety Report 10166408 (Version 1)
Quarter: 2014Q2

REPORT INFORMATION
  Report Type: Spontaneous
  Country: US (occurrence: None)
  Receive Date: 20140509
  Receipt Date: 20140509
  Transmission Date: 20141212
  Serious: Yes (Death)
  Sender: FDA-Public Use
  Company Number: None

PATIENT
  Age: 79 Year
  Sex: Female
  Weight: 48.08 kg

DRUGS (8)
  1. OBINUTUZUMAB [Suspect]
     Indication: CHRONIC LYMPHOCYTIC LEUKAEMIA STAGE 4
     Route: 042
     Dates: start: 20140507, end: 20140507
  2. OBINUTUZUMAB [Suspect]
     Indication: LYMPHADENOPATHY
     Route: 042
     Dates: start: 20140507, end: 20140507
  3. CHLORAMBUCIL [Concomitant]
  4. ANTIHYPERTENSIVE [Concomitant]
  5. ALLOPURINOL [Concomitant]
  6. TYLENOL [Concomitant]
  7. BENADRYL [Concomitant]
  8. DECADRON [Concomitant]

REACTIONS (2)
  - Fatigue [None]
  - Dyspnoea [None]
